FAERS Safety Report 8452696-5 (Version None)
Quarter: 2012Q2

REPORT INFORMATION
  Report Type: 
  Country: None (occurrence: None)
  Receive Date: 20120620
  Receipt Date: 20120423
  Transmission Date: 20120825
  Serious: No
  Sender: FDA-Public Use
  Company Number: US-VERTEX PHARMACEUTICALS INC.-AE-2012-005849

PATIENT
  Sex: Male
  Weight: 102.15 kg

DRUGS (7)
  1. MULTI-VITAMIN [Concomitant]
  2. LISINOPRIL [Concomitant]
  3. RIBAVIRIN [Concomitant]
     Indication: HEPATITIS C
     Dates: start: 20120405
  4. STOOL SOFTENER [Concomitant]
  5. GLYBURIDE [Concomitant]
  6. PEGASYS [Concomitant]
     Indication: HEPATITIS C
     Dates: start: 20120405
  7. INCIVEK [Suspect]
     Indication: HEPATITIS C
     Route: 048
     Dates: start: 20120405

REACTIONS (3)
  - PAINFUL DEFAECATION [None]
  - ANORECTAL DISCOMFORT [None]
  - HAEMORRHOIDS [None]
